FAERS Safety Report 6429386-3 (Version None)
Quarter: 2009Q4

REPORT INFORMATION
  Report Type: 
  Country: None (occurrence: None)
  Receive Date: 20091105
  Receipt Date: 20090311
  Transmission Date: 20100525
  Serious: No
  Sender: FDA-Public Use
  Company Number: US-ABBOTT-09P-163-0566246-00

PATIENT
  Age: 44 Year
  Sex: Male

DRUGS (4)
  1. KALETRA [Suspect]
     Indication: HIV INFECTION
     Dates: start: 20080301, end: 20081001
  2. NELFINAVIR MESYLATE [Suspect]
     Indication: HIV INFECTION
     Dates: start: 20080301, end: 20081001
  3. ENFUVIRTIDE [Suspect]
     Indication: HIV INFECTION
     Dates: start: 20080301, end: 20081001
  4. TRUVADA [Suspect]
     Indication: HIV INFECTION
     Dates: start: 20080301, end: 20081001

REACTIONS (1)
  - VIROLOGIC FAILURE [None]
